FAERS Safety Report 7473360-5 (Version None)
Quarter: 2011Q2

REPORT INFORMATION
  Report Type: 
  Country: None (occurrence: None)
  Receive Date: 20110511
  Receipt Date: 20110509
  Transmission Date: 20111010
  Serious: Yes (Hospitalization, Other)
  Sender: FDA-Public Use
  Company Number: US-TEVA-280819USA

PATIENT

DRUGS (1)
  1. METHOTREXATE [Suspect]
     Route: 064

REACTIONS (10)
  - CONGENITAL PULMONARY ARTERY ANOMALY [None]
  - ANOTIA [None]
  - MULTIPLE CONGENITAL ABNORMALITIES [None]
  - CONGENITAL PULMONARY VALVE ATRESIA [None]
  - VENTRICULAR SEPTAL DEFECT [None]
  - CONGENITAL INTESTINAL MALFORMATION [None]
  - MICROGNATHIA [None]
  - CONGENITAL HYDRONEPHROSIS [None]
  - RENAL DYSPLASIA [None]
  - PATENT DUCTUS ARTERIOSUS [None]
